FAERS Safety Report 6561535-9 (Version None)
Quarter: 2010Q1

REPORT INFORMATION
  Report Type: 
  Country: None (occurrence: None)
  Receive Date: 20100130
  Receipt Date: 20091020
  Transmission Date: 20100710
  Serious: No
  Sender: FDA-Public Use
  Company Number: US-ABBOTT-09P-163-0604495-00

PATIENT
  Age: 7 Year
  Sex: Male

DRUGS (2)
  1. HUMIRA [Suspect]
     Indication: COLITIS ULCERATIVE
  2. HUMIRA [Suspect]
     Route: 058

REACTIONS (2)
  - THERAPEUTIC RESPONSE DECREASED [None]
  - THERAPY REGIMEN CHANGED [None]
